FAERS Safety Report 10673822 (Version 5)
Quarter: 2015Q1

REPORT INFORMATION
  Report Type: Spontaneous
  Country: US (occurrence: US)
  Receive Date: 20141224
  Receipt Date: 20150130
  Transmission Date: 20150720
  Serious: Yes (Other)
  Sender: FDA-Public Use
  Company Number: US-JNJFOC-20141214383

PATIENT
  Age: 9 Decade
  Sex: Male

DRUGS (2)
  1. XARELTO [Suspect]
     Active Substance: RIVAROXABAN
     Indication: CEREBROVASCULAR ACCIDENT PROPHYLAXIS
     Route: 048
  2. XARELTO [Suspect]
     Active Substance: RIVAROXABAN
     Indication: ATRIAL FIBRILLATION
     Route: 048

REACTIONS (6)
  - Dehydration [Unknown]
  - Loss of consciousness [Unknown]
  - Renal impairment [Unknown]
  - Urinary tract infection [Unknown]
  - Subarachnoid haemorrhage [Unknown]
  - Fall [Unknown]
